FAERS Safety Report 7647441-7 (Version None)
Quarter: 2011Q3

REPORT INFORMATION
  Report Type: 
  Country: None (occurrence: None)
  Receive Date: 20110801
  Receipt Date: 20110715
  Transmission Date: 20111222
  Serious: No
  Sender: FDA-Public Use
  Company Number: US-B.I. PHARMACEUTICALS,INC./RIDGEFIELD-2011-BP-15991BP

PATIENT
  Age: 79 Year
  Sex: Male

DRUGS (3)
  1. SPIRIVA [Suspect]
     Indication: PNEUMONIA
     Dosage: 18 MCG
     Route: 055
     Dates: start: 20110101
  2. SPIRIVA [Suspect]
     Indication: BRONCHITIS
  3. LISINOPRIL [Concomitant]
     Indication: HYPERTENSION
     Route: 048

REACTIONS (3)
  - COUGH [None]
  - URINE OUTPUT DECREASED [None]
  - CONSTIPATION [None]
